FAERS Safety Report 24694879 (Version 1)
Quarter: 2024Q4

REPORT INFORMATION
  Report Type: Spontaneous
  Country: US (occurrence: None)
  Receive Date: 20241203
  Receipt Date: 20241203
  Transmission Date: 20250114
  Serious: No
  Sender: Public
  Company Number: None

PATIENT
  Age: 73 Year
  Sex: Male

DRUGS (1)
  1. GAMUNEX-C [Suspect]
     Active Substance: HUMAN IMMUNOGLOBULIN G
     Indication: Chronic inflammatory demyelinating polyradiculoneuropathy
     Dosage: 50 G GRAM(S) DAILY INTRAVENOUS?
     Route: 042
     Dates: start: 20241202, end: 20241203

REACTIONS (2)
  - Bradycardia [None]
  - Mental status changes [None]

NARRATIVE: CASE EVENT DATE: 20241203
